FAERS Safety Report 13768774 (Version 12)
Quarter: 2021Q1

REPORT INFORMATION
  Report Type: Report from Study
  Country: US (occurrence: US)
  Receive Date: 20170719
  Receipt Date: 20210219
  Transmission Date: 20210419
  Serious: Yes (Hospitalization, Other)
  Sender: FDA-Public Use
  Company Number: PHEH2017US021396

PATIENT
  Sex: Female

DRUGS (4)
  1. AFINITOR [Suspect]
     Active Substance: EVEROLIMUS
     Indication: ANGIOMYOLIPOMA
     Dosage: 10 MG
     Route: 048
  2. AFINITOR [Suspect]
     Active Substance: EVEROLIMUS
     Indication: TUBEROUS SCLEROSIS COMPLEX
     Dosage: 5 MG, QD
     Route: 048
     Dates: start: 20150711
  3. AFINITOR [Suspect]
     Active Substance: EVEROLIMUS
     Dosage: 10 MG
     Route: 048
  4. AFINITOR [Suspect]
     Active Substance: EVEROLIMUS
     Dosage: 5 MG, QD
     Route: 065

REACTIONS (15)
  - Rash [Unknown]
  - Alopecia [Unknown]
  - Breast mass [Unknown]
  - Blood pressure increased [Unknown]
  - Asthenia [Unknown]
  - Renal cell carcinoma [Recovering/Resolving]
  - Malignant neoplasm progression [Unknown]
  - Epistaxis [Unknown]
  - Eye infection [Unknown]
  - Hepatic lesion [Unknown]
  - Liver disorder [Unknown]
  - Abdominal distension [Unknown]
  - Tremor [Unknown]
  - Angioedema [Unknown]
  - Angiomyolipoma [Unknown]
